FAERS Safety Report 5830226-1 (Version None)
Quarter: 2008Q3

REPORT INFORMATION
  Report Type: 
  Country: None (occurrence: None)
  Receive Date: 20080801
  Receipt Date: 20080725
  Transmission Date: 20090109
  Serious: Yes (Hospitalization)
  Sender: FDA-Public Use
  Company Number: B0526445A

PATIENT
  Age: 58 Year
  Sex: Male
  Weight: 78 kg

DRUGS (8)
  1. LAPATINIB [Suspect]
     Dosage: 500MG PER DAY
     Route: 048
     Dates: start: 20080521
  2. DOCETAXEL [Suspect]
     Dosage: 111MG PER DAY
     Route: 042
     Dates: start: 20080611
  3. CISPLATIN [Suspect]
     Dosage: 139MG PER DAY
     Route: 042
     Dates: start: 20080521
  4. FLUOROURACIL [Suspect]
     Dosage: 6938MG PER DAY
     Route: 042
     Dates: start: 20080521
  5. FUROSEMIDE [Concomitant]
     Indication: HYPERTENSION
     Dosage: 40MG PER DAY
     Route: 048
     Dates: start: 20080101, end: 20080620
  6. FRAXODI [Concomitant]
     Indication: DEEP VEIN THROMBOSIS
     Dosage: .8ML FOUR TIMES PER DAY
     Route: 058
     Dates: start: 20080611
  7. CIPROFLOXACIN [Concomitant]
     Indication: INFECTION PROPHYLAXIS
     Dosage: 500MG TWICE PER DAY
     Route: 048
     Dates: start: 20080706
  8. ZANTAC [Concomitant]
     Indication: PROPHYLAXIS
     Dosage: 300MG FOUR TIMES PER DAY
     Route: 048
     Dates: start: 20080101

REACTIONS (3)
  - BLOOD CREATININE INCREASED [None]
  - DEHYDRATION [None]
  - DIARRHOEA [None]
